FAERS Safety Report 7917690-9 (Version None)
Quarter: 2011Q4

REPORT INFORMATION
  Report Type: 
  Country: None (occurrence: None)
  Receive Date: 20111116
  Receipt Date: 20111104
  Transmission Date: 20120403
  Serious: No
  Sender: FDA-Public Use
  Company Number: US-JNJFOC-20111102834

PATIENT
  Sex: Male

DRUGS (1)
  1. INVEGA SUSTENNA [Suspect]
     Indication: PRODUCT USED FOR UNKNOWN INDICATION
     Route: 030
     Dates: end: 20111104

REACTIONS (4)
  - MUSCULOSKELETAL PAIN [None]
  - INJECTION SITE NODULE [None]
  - MYALGIA [None]
  - THINKING ABNORMAL [None]
